FAERS Safety Report 6978747-2 (Version None)
Quarter: 2010Q3

REPORT INFORMATION
  Report Type: 
  Country: None (occurrence: None)
  Receive Date: 20100913
  Receipt Date: 20100907
  Transmission Date: 20110219
  Serious: Yes (Death)
  Sender: FDA-Public Use
  Company Number: JP-ROCHE-725406

PATIENT
  Sex: Female
  Weight: 47 kg

DRUGS (15)
  1. TOCILIZUMAB [Suspect]
     Indication: RHEUMATOID ARTHRITIS
     Dosage: FORM: INJECTION
     Route: 041
     Dates: start: 20090818, end: 20090818
  2. TOCILIZUMAB [Suspect]
     Route: 041
     Dates: start: 20090915, end: 20090915
  3. TOCILIZUMAB [Suspect]
     Route: 041
     Dates: start: 20091013, end: 20091013
  4. TOCILIZUMAB [Suspect]
     Route: 041
     Dates: start: 20091110, end: 20091110
  5. TOCILIZUMAB [Suspect]
     Route: 041
     Dates: start: 20091208, end: 20091208
  6. TOCILIZUMAB [Suspect]
     Route: 041
     Dates: start: 20100105, end: 20100105
  7. TOCILIZUMAB [Suspect]
     Route: 041
     Dates: start: 20100202
  8. METHOTREXATE [Concomitant]
     Dosage: FORM: PER ORAL AGENT
     Route: 048
  9. PREDNISOLONE [Concomitant]
     Dosage: FORM: PER ORAL AGENT
     Route: 048
  10. ALFAROL [Concomitant]
     Dosage: FORM: PER ORAL AGENT
     Route: 048
  11. ACTONEL [Concomitant]
     Dosage: GENERIC NAME REPORTED AS: SODIUM RISEDRONATE HYDRATE
     Route: 048
  12. LOXONIN [Concomitant]
     Dosage: GENERIC NAME REPORTED AS: LOXOPROFEN SODIUM
     Route: 048
  13. MARZULENE [Concomitant]
     Dosage: FORM: PER ORAL AGENT, GENERIC NAME: AZULENE SULFONATE SODIUM
     Route: 048
  14. MUCOSTA [Concomitant]
     Dosage: FORM: GRANULATED POWDER
     Route: 054
  15. TECELEUKIN [Concomitant]
     Dosage: DRUG NAME: IMUNACE/TECELEUKIN(GENETICAL RECOMBINATION)
     Route: 041
     Dates: start: 20090713

REACTIONS (1)
  - ANGIOSARCOMA [None]
